FAERS Safety Report 6494788-6 (Version None)
Quarter: 2009Q4

REPORT INFORMATION
  Report Type: 
  Country: None (occurrence: None)
  Receive Date: 20091214
  Receipt Date: 20090330
  Transmission Date: 20100525
  Serious: No
  Sender: FDA-Public Use
  Company Number: US-BRISTOL-MYERS SQUIBB COMPANY-14560270

PATIENT
  Age: 40 Year
  Sex: Female
  Weight: 63 kg

DRUGS (5)
  1. ABILIFY [Suspect]
     Indication: ANXIETY
     Dosage: DRUG REDUCED TO 5MG FROM 25MAR09.
     Dates: start: 20090303
  2. KLONOPIN [Concomitant]
  3. OMEPRAZOLE [Concomitant]
  4. WELLBUTRIN [Concomitant]
  5. TOPAMAX [Concomitant]

REACTIONS (15)
  - CHOKING [None]
  - CONTUSION [None]
  - DIZZINESS [None]
  - DYSARTHRIA [None]
  - DYSPHAGIA [None]
  - DYSURIA [None]
  - FATIGUE [None]
  - GAIT DISTURBANCE [None]
  - HEADACHE [None]
  - INSOMNIA [None]
  - LOSS OF CONSCIOUSNESS [None]
  - PALLOR [None]
  - RASH GENERALISED [None]
  - TONGUE DISORDER [None]
  - WEIGHT INCREASED [None]
